FAERS Safety Report 7931166-4 (Version None)
Quarter: 2011Q4

REPORT INFORMATION
  Report Type: 
  Country: None (occurrence: None)
  Receive Date: 20111118
  Receipt Date: 20111118
  Transmission Date: 20120403
  Serious: Yes (Hospitalization)
  Sender: FDA-Public Use
  Company Number: None

PATIENT
  Sex: Female

DRUGS (10)
  1. LORCET-HD [Concomitant]
  2. NEULASTA [Concomitant]
  3. COMPAZINE [Concomitant]
  4. BENDAMUSTINE [Suspect]
     Dosage: 175 MG DAY 1 AND DAY 2 OF 21 DAY CYCLE
     Dates: start: 20110509, end: 20110822
  5. XANAX [Concomitant]
  6. BENICAR [Concomitant]
  7. LEVOCETIRIZINE DIHYCHLORIDE [Concomitant]
  8. POTASSIUM CHLORIDE [Concomitant]
  9. LIPITOR [Concomitant]
  10. MEGACE [Concomitant]

REACTIONS (1)
  - PNEUMONITIS [None]
